FAERS Safety Report 9678373 (Version 1)
Quarter: 2013Q4

REPORT INFORMATION
  Report Type: Spontaneous
  Country: CH (occurrence: CH)
  Receive Date: 20131108
  Receipt Date: 20131108
  Transmission Date: 20140711
  Serious: Yes (Hospitalization)
  Sender: FDA-Public Use
  Company Number: CH-ASTRAZENECA-2013SE80244

PATIENT
  Age: 52 Year
  Sex: Male

DRUGS (9)
  1. ESOMEP [Suspect]
     Route: 048
     Dates: start: 201307
  2. ASPIRIN CARDIO [Suspect]
     Route: 048
     Dates: start: 201307
  3. BACTRIM FORT [Suspect]
     Dosage: 800/160 MG, 0.5 DF DAILY
     Route: 048
     Dates: start: 201307
  4. PLAVIX [Suspect]
     Route: 048
     Dates: start: 201307
  5. NEBILET [Suspect]
     Route: 048
     Dates: start: 201307
  6. MYFORTIC [Concomitant]
     Route: 048
     Dates: start: 201307
  7. PROGRAF [Concomitant]
     Route: 048
  8. VALCYTE [Concomitant]
     Route: 048
  9. ATARAX [Concomitant]
     Route: 048

REACTIONS (4)
  - Drug reaction with eosinophilia and systemic symptoms [Recovered/Resolved]
  - Pyrexia [Recovered/Resolved]
  - Eosinophilia [Recovered/Resolved]
  - Rash [Recovered/Resolved]
